FAERS Safety Report 5176055-6 (Version None)
Quarter: 2006Q4

REPORT INFORMATION
  Report Type: 
  Country: None (occurrence: None)
  Receive Date: 20061215
  Receipt Date: 20060629
  Transmission Date: 20070319
  Serious: No
  Sender: FDA-Public Use
  Company Number: US-AMGEN-KDL184824

PATIENT
  Sex: Male

DRUGS (1)
  1. ENBREL [Suspect]
     Route: 058
     Dates: start: 20060615

REACTIONS (5)
  - DIZZINESS [None]
  - DYSPHONIA [None]
  - HYPERHIDROSIS [None]
  - NAUSEA [None]
  - TREMOR [None]
